FAERS Safety Report 17543727 (Version 1)
Quarter: 2020Q1

REPORT INFORMATION
  Report Type: Spontaneous
  Country: GB (occurrence: GB)
  Receive Date: 20200316
  Receipt Date: 20200316
  Transmission Date: 20200409
  Serious: Yes (Other)
  Sender: FDA-Public Use
  Company Number: GB-TEVA-2020-GB-1199880

PATIENT
  Age: 21 Year
  Sex: Female
  Weight: 54.5 kg

DRUGS (1)
  1. TEVA UK METOCLOPRAMIDE [Suspect]
     Active Substance: METOCLOPRAMIDE
     Indication: MORNING SICKNESS
     Dosage: 10 MG
     Route: 048
     Dates: start: 20200124, end: 20200125

REACTIONS (5)
  - Maternal exposure during pregnancy [Unknown]
  - Tongue disorder [Unknown]
  - Dysarthria [Unknown]
  - Dystonia [Recovered/Resolved]
  - Lip disorder [Unknown]

NARRATIVE: CASE EVENT DATE: 20200125
